FAERS Safety Report 6463459-4 (Version None)
Quarter: 2009Q4

REPORT INFORMATION
  Report Type: 
  Country: None (occurrence: None)
  Receive Date: 20091201
  Receipt Date: 20091019
  Transmission Date: 20100525
  Serious: Yes (Other)
  Sender: FDA-Public Use
  Company Number: US-AMGEN-QUU369813

PATIENT
  Sex: Male

DRUGS (16)
  1. ENBREL [Suspect]
     Indication: RHEUMATOID ARTHRITIS
     Dates: end: 20090929
  2. METHOTREXATE [Concomitant]
  3. PREDNISONE [Concomitant]
  4. FOLIC ACID [Concomitant]
  5. GABAPENTIN [Concomitant]
  6. AMBIEN [Concomitant]
  7. AMRIX [Concomitant]
  8. OXYCONTIN [Concomitant]
  9. GLUCOSAMINE W/CHONDROITIN SULFATES [Concomitant]
  10. SENOKOT [Concomitant]
  11. MULTI-VITAMINS [Concomitant]
  12. OS-CAL + D [Concomitant]
  13. VIACTIVE [Concomitant]
  14. LOVAZA [Concomitant]
  15. ASPIRIN [Concomitant]
  16. SAW PALMETTO [Concomitant]

REACTIONS (1)
  - DIFFUSE LARGE B-CELL LYMPHOMA [None]
